FAERS Safety Report 6712563-1 (Version None)
Quarter: 2010Q2

REPORT INFORMATION
  Report Type: 
  Country: None (occurrence: None)
  Receive Date: 20100505
  Receipt Date: 20100505
  Transmission Date: 20101027
  Serious: No
  Sender: FDA-Public Use
  Company Number: None

PATIENT
  Sex: Female
  Weight: 68.9467 kg

DRUGS (1)
  1. PREDNISONE [Suspect]
     Indication: LUNG DISORDER
     Dosage: 2 - 10 MG TAB. ONCE DAILY
     Dates: start: 20100211

REACTIONS (3)
  - DYSSTASIA [None]
  - HEAD TITUBATION [None]
  - TREMOR [None]
